FAERS Safety Report 11752754 (Version 4)
Quarter: 2016Q3

REPORT INFORMATION
  Report Type: Spontaneous
  Country: US (occurrence: US)
  Receive Date: 20151119
  Receipt Date: 20160916
  Transmission Date: 20161109
  Serious: Yes (Other)
  Sender: FDA-Public Use
  Company Number: PHEH2015US023996

PATIENT
  Sex: Female
  Weight: 81.63 kg

DRUGS (4)
  1. ONDANSETRONE TEVA [Suspect]
     Active Substance: ONDANSETRON HYDROCHLORIDE
     Indication: VOMITING IN PREGNANCY
     Dosage: 2 DF, Q4H
     Route: 048
     Dates: start: 2013, end: 201309
  2. ONDANSETRON. [Suspect]
     Active Substance: ONDANSETRON
     Indication: VOMITING IN PREGNANCY
     Route: 048
  3. ZOFRAN [Suspect]
     Active Substance: ONDANSETRON HYDROCHLORIDE
     Indication: VOMITING IN PREGNANCY
     Dosage: 1 TO 2 TABLET, Q4H
     Route: 048
     Dates: start: 201304, end: 20130618
  4. ONDANSETRON HYDROCHLORIDE. [Suspect]
     Active Substance: ONDANSETRON HYDROCHLORIDE
     Indication: VOMITING IN PREGNANCY
     Route: 048

REACTIONS (8)
  - Emotional distress [Unknown]
  - Product use issue [Unknown]
  - Maternal exposure during pregnancy [Unknown]
  - Polyhydramnios [Unknown]
  - Gestational diabetes [Unknown]
  - Anxiety [Unknown]
  - Injury [Unknown]
  - Pain [Unknown]
